FAERS Safety Report 8522036-1 (Version None)
Quarter: 2012Q3

REPORT INFORMATION
  Report Type: 
  Country: None (occurrence: None)
  Receive Date: 20120719
  Receipt Date: 20120709
  Transmission Date: 20120928
  Serious: Yes (Hospitalization, Other)
  Sender: FDA-Public Use
  Company Number: JP-VERTEX PHARMACEUTICALS INC.-AE-2012-009014

PATIENT
  Age: 68 Year
  Sex: Male

DRUGS (5)
  1. RIBAVIRIN [Concomitant]
     Route: 048
     Dates: start: 20120403
  2. TELAVIC (TELAPREVIR) [Suspect]
     Indication: HEPATITIS C
     Route: 048
     Dates: start: 20120403, end: 20120613
  3. PEGINTERFERON ALFA-2B [Concomitant]
     Route: 058
     Dates: start: 20120403, end: 20120409
  4. ALLOPURINOL [Concomitant]
     Route: 048
     Dates: start: 20120410
  5. PEGINTERFERON ALFA-2B [Concomitant]
     Route: 058
     Dates: start: 20120410

REACTIONS (3)
  - RASH [None]
  - ENANTHEMA [None]
  - ERYTHEMA MULTIFORME [None]
